FAERS Safety Report 20070017 (Version 1)
Quarter: 2021Q4

REPORT INFORMATION
  Report Type: Spontaneous
  Country: US (occurrence: None)
  Receive Date: 20211112
  Receipt Date: 20211112
  Transmission Date: 20220304
  Serious: Yes (Death)
  Sender: FDA-Public Use
  Company Number: None

PATIENT
  Age: 55 Year
  Sex: Female

DRUGS (2)
  1. OCTREOTIDE [Suspect]
     Active Substance: OCTREOTIDE
     Indication: Diarrhoea
     Dosage: OTHER STRENGTH : 100MCG/ML;?FREQUENCY : 3 TIMES A DAY;?
     Route: 058
     Dates: start: 20210805, end: 20211105
  2. OCTREOTIDE [Suspect]
     Active Substance: OCTREOTIDE
     Indication: Colon cancer

REACTIONS (1)
  - Death [None]

NARRATIVE: CASE EVENT DATE: 20211105
